FAERS Safety Report 10208090 (Version 2)
Quarter: 2014Q3

REPORT INFORMATION
  Report Type: Spontaneous
  Country: DE (occurrence: DE)
  Receive Date: 20140530
  Receipt Date: 20140806
  Transmission Date: 20150326
  Serious: Yes (Other)
  Sender: FDA-Public Use
  Company Number: PHHY2014DE064426

PATIENT
  Sex: Female

DRUGS (1)
  1. INTERFERON BETA-1B [Suspect]
     Active Substance: INTERFERON BETA-1B
     Indication: MULTIPLE SCLEROSIS
     Dosage: UKN
     Route: 058
     Dates: start: 200803

REACTIONS (7)
  - Transaminases increased [Recovered/Resolved]
  - Simplex virus test positive [Unknown]
  - Hepatic necrosis [Recovered/Resolved]
  - Ocular icterus [Recovered/Resolved]
  - Decreased appetite [Recovered/Resolved]
  - Blood cholesterol increased [Unknown]
  - Cholestasis [Unknown]

NARRATIVE: CASE EVENT DATE: 200804
